FAERS Safety Report 23905720 (Version 1)
Quarter: 2024Q2

REPORT INFORMATION
  Report Type: Spontaneous
  Country: AU (occurrence: AU)
  Receive Date: 20240527
  Receipt Date: 20240527
  Transmission Date: 20240716
  Serious: Yes (Other)
  Sender: FDA-Public Use
  Company Number: AU-TGA-0000782553

PATIENT
  Age: 65 Year
  Sex: Female
  Weight: 45 kg

DRUGS (2)
  1. RISPERIDONE [Suspect]
     Active Substance: RISPERIDONE
     Indication: Schizophrenia
     Dosage: AROUND APRIL OR MAY 2019
     Route: 048
     Dates: start: 20190430, end: 20200901
  2. RISPERIDONE [Suspect]
     Active Substance: RISPERIDONE
     Indication: Chorea

REACTIONS (11)
  - Restless legs syndrome [Recovering/Resolving]
  - Brain fog [Recovering/Resolving]
  - Chorea [Recovering/Resolving]
  - Cognitive disorder [Recovering/Resolving]
  - Depersonalisation/derealisation disorder [Recovering/Resolving]
  - Gastrooesophageal reflux disease [Recovering/Resolving]
  - Haematochezia [Recovered/Resolved]
  - Intestinal barrier dysfunction [Recovering/Resolving]
  - Akathisia [Recovering/Resolving]
  - Weight decreased [Recovering/Resolving]
  - Abdominal pain [Recovering/Resolving]

NARRATIVE: CASE EVENT DATE: 20190601
